FAERS Safety Report 5408057-6 (Version None)
Quarter: 2007Q3

REPORT INFORMATION
  Report Type: 
  Country: None (occurrence: None)
  Receive Date: 20070808
  Receipt Date: 20070730
  Transmission Date: 20080115
  Serious: Yes (Other)
  Sender: FDA-Public Use
  Company Number: PHBS2007JP11562

PATIENT
  Age: 58 Year
  Sex: Female

DRUGS (7)
  1. ZOMETA [Suspect]
     Indication: METASTASES TO BONE
     Dosage: 4 MG/MONTH
     Route: 042
     Dates: start: 20061013, end: 20070411
  2. DECADRON [Suspect]
     Dosage: 2 MG/DAY
     Route: 048
     Dates: start: 20060811
  3. HERCEPTIN [Concomitant]
     Indication: METASTASES TO LIVER
     Dosage: 240 MG/DAY
     Route: 042
     Dates: start: 20060927
  4. DEPAKENE [Concomitant]
     Dosage: 400 MG/DAY
     Route: 048
     Dates: start: 20060818
  5. FAMOTIDINE [Concomitant]
     Dosage: 40 MG/DAY
     Route: 048
     Dates: start: 20060811
  6. ROHYPNOL [Concomitant]
     Dosage: 2 MG/DAY
     Route: 048
     Dates: start: 20060811
  7. LOXONIN [Concomitant]
     Dosage: 140 MG/DAY
     Route: 048
     Dates: start: 20060811

REACTIONS (8)
  - C-REACTIVE PROTEIN INCREASED [None]
  - COMPUTERISED TOMOGRAM [None]
  - JAW DISORDER [None]
  - JOINT SWELLING [None]
  - ORAL INTAKE REDUCED [None]
  - OSTEOMYELITIS [None]
  - PAIN IN JAW [None]
  - POOR PERSONAL HYGIENE [None]
